FAERS Safety Report 15580393 (Version 1)
Quarter: 2018Q4

REPORT INFORMATION
  Report Type: Spontaneous
  Country: DE (occurrence: DE)
  Receive Date: 20181102
  Receipt Date: 20181102
  Transmission Date: 20190205
  Serious: Yes (Other)
  Sender: FDA-Public Use
  Company Number: DE-SA-2018SA297018

PATIENT
  Sex: Female

DRUGS (1)
  1. CHOLESTAGEL [Suspect]
     Active Substance: COLESEVELAM HYDROCHLORIDE
     Indication: POST PROCEDURAL DIARRHOEA
     Route: 048

REACTIONS (2)
  - Hepatic cirrhosis [Unknown]
  - Off label use [Unknown]
